FAERS Safety Report 6137986-3 (Version None)
Quarter: 2009Q1

REPORT INFORMATION
  Report Type: 
  Country: None (occurrence: None)
  Receive Date: 20090327
  Receipt Date: 20090327
  Transmission Date: 20090719
  Serious: No
  Sender: FDA-Public Use
  Company Number: None

PATIENT
  Sex: Female
  Weight: 70.3075 kg

DRUGS (1)
  1. LEVAQUIN [Suspect]
     Indication: GASTROINTESTINAL INFECTION
     Dosage: 500MG ONCE A DAY ORAL
     Route: 048
     Dates: start: 20081209, end: 20081218

REACTIONS (14)
  - ARTHROPATHY [None]
  - AUTOIMMUNE DISORDER [None]
  - EAR INFECTION [None]
  - GENITAL DISORDER FEMALE [None]
  - HYPOAESTHESIA [None]
  - INFECTION [None]
  - MUSCLE DISORDER [None]
  - MUSCULOSKELETAL STIFFNESS [None]
  - NECK PAIN [None]
  - ORAL CANDIDIASIS [None]
  - PARAESTHESIA [None]
  - STOMATITIS [None]
  - TENDON DISORDER [None]
  - URINARY TRACT INFECTION [None]
